FAERS Safety Report 10484443 (Version 1)
Quarter: 2014Q3

REPORT INFORMATION
  Report Type: Spontaneous
  Country: US (occurrence: None)
  Receive Date: 20140926
  Receipt Date: 20140926
  Transmission Date: 20150326
  Serious: Yes (Other)
  Sender: FDA-Public Use
  Company Number: 2009S1008189

PATIENT
  Age: 70 Year
  Sex: Female
  Weight: 48 kg

DRUGS (4)
  1. LEXAPRO (ESCITALOPRAM OXALLATE) [Concomitant]
  2. PHOSPHO-SODA [Suspect]
     Active Substance: SODIUM PHOSPHATE, DIBASIC\SODIUM PHOSPHATE, MONOBASIC
     Indication: COLONOSCOPY
     Route: 048
     Dates: start: 20081008, end: 20081009
  3. ZESTORETIC (HYDROCHLOROTHIAZIDE, LISINOPRIL) [Concomitant]
  4. LOTREL (BENAZEPRIL HYDROCHLORIDE, AMLODIPINE BESILATE) [Concomitant]

REACTIONS (15)
  - Acute phosphate nephropathy [None]
  - Nephrosclerosis [None]
  - Dysgeusia [None]
  - Abdominal discomfort [None]
  - Anaemia [None]
  - Renal tubular disorder [None]
  - Dialysis [None]
  - Renal failure chronic [None]
  - Renal failure acute [None]
  - Uterine leiomyoma [None]
  - Fatigue [None]
  - Nausea [None]
  - Decreased appetite [None]
  - Post procedural complication [None]
  - Hyperparathyroidism secondary [None]

NARRATIVE: CASE EVENT DATE: 20081031
